FAERS Safety Report 7211327-2 (Version None)
Quarter: 2011Q1

REPORT INFORMATION
  Report Type: 
  Country: None (occurrence: None)
  Receive Date: 20110105
  Receipt Date: 20101214
  Transmission Date: 20110831
  Serious: No
  Sender: FDA-Public Use
  Company Number: US-B.I. PHARMACEUTICALS,INC./RIDGEFIELD-2010-BP-14572BP

PATIENT
  Age: 78 Year
  Sex: Female

DRUGS (2)
  1. MULTAQ [Suspect]
     Indication: HYPERTENSION
     Route: 048
     Dates: start: 20101204, end: 20101214
  2. PRADAXA [Suspect]
     Indication: ATRIAL FIBRILLATION
     Dosage: 300 MG
     Route: 048
     Dates: start: 20101204

REACTIONS (4)
  - NAUSEA [None]
  - THROAT TIGHTNESS [None]
  - ERUCTATION [None]
  - DIARRHOEA [None]
